FAERS Safety Report 24566794 (Version 2)
Quarter: 2024Q4

REPORT INFORMATION
  Report Type: Spontaneous
  Country: NZ (occurrence: NZ)
  Receive Date: 20241030
  Receipt Date: 20241223
  Transmission Date: 20250115
  Serious: No
  Sender: PFIZER
  Company Number: NZ-PFIZER INC-202400286117

PATIENT
  Age: 76 Year
  Sex: Female

DRUGS (1)
  1. ENBREL [Suspect]
     Active Substance: ETANERCEPT
     Dosage: UNK, EVERY 10 DAYS

REACTIONS (5)
  - Wrong technique in device usage process [Unknown]
  - Limb injury [Unknown]
  - Injection site haemorrhage [Unknown]
  - Injection site pain [Unknown]
  - Off label use [Unknown]
